FAERS Safety Report 4556324-0 (Version None)
Quarter: 2005Q1

REPORT INFORMATION
  Report Type: 
  Country: None (occurrence: None)
  Receive Date: 20050103
  Receipt Date: 20040819
  Transmission Date: 20050727
  Serious: Yes (Other)
  Sender: FDA-Public Use
  Company Number: 2004UW17692

PATIENT

DRUGS (2)
  1. CRESTOR [Suspect]
     Dosage: 10 MG PO
     Route: 048
  2. LOTREL [Suspect]
     Dosage: 5/20

REACTIONS (3)
  - BLOOD AMYLASE INCREASED [None]
  - BLOOD LACTIC ACID INCREASED [None]
  - LIPASE INCREASED [None]
